FAERS Safety Report 16286838 (Version 2)
Quarter: 2019Q2

REPORT INFORMATION
  Report Type: Spontaneous
  Country: GB (occurrence: GB)
  Receive Date: 20190508
  Receipt Date: 20190607
  Transmission Date: 20190711
  Serious: Yes (Disabling, Other)
  Sender: FDA-Public Use
  Company Number: GB-ELI_LILLY_AND_COMPANY-GB201904015512

PATIENT
  Age: 36 Year
  Sex: Male

DRUGS (9)
  1. AMISULPRIDE [Concomitant]
     Active Substance: AMISULPRIDE
     Indication: PRODUCT USED FOR UNKNOWN INDICATION
     Dosage: 100 MG, DAILY
     Route: 048
  2. DULOXETINE HYDROCHLORIDE. [Suspect]
     Active Substance: DULOXETINE HYDROCHLORIDE
     Indication: ANXIETY
     Dosage: 60 MG, DAILY
     Route: 048
  3. DULOXETINE HYDROCHLORIDE. [Suspect]
     Active Substance: DULOXETINE HYDROCHLORIDE
     Dosage: 20 MG, DAILY
     Route: 048
     Dates: start: 20190402
  4. PROPRANOLOL [Concomitant]
     Active Substance: PROPRANOLOL HYDROCHLORIDE
     Indication: PRODUCT USED FOR UNKNOWN INDICATION
     Route: 048
  5. DULOXETINE HYDROCHLORIDE. [Suspect]
     Active Substance: DULOXETINE HYDROCHLORIDE
     Indication: DEPRESSION
     Dosage: 30 MG, UNKNOWN
     Route: 048
  6. DULOXETINE HYDROCHLORIDE. [Suspect]
     Active Substance: DULOXETINE HYDROCHLORIDE
     Dosage: 1 DOSAGE FORM, UNKNOWN
     Route: 048
  7. MIRTAZAPINE. [Concomitant]
     Active Substance: MIRTAZAPINE
     Indication: PRODUCT USED FOR UNKNOWN INDICATION
     Dosage: 15 MG, DAILY
     Route: 048
  8. PREGABALIN. [Concomitant]
     Active Substance: PREGABALIN
     Indication: PRODUCT USED FOR UNKNOWN INDICATION
     Dosage: 600 MG, DAILY
     Route: 048
  9. DULOXETINE HYDROCHLORIDE. [Suspect]
     Active Substance: DULOXETINE HYDROCHLORIDE
     Dosage: 20 MG, DAILY
     Route: 048
     Dates: start: 201902, end: 20190328

REACTIONS (10)
  - Drug ineffective [Not Recovered/Not Resolved]
  - Off label use [Not Recovered/Not Resolved]
  - Paraesthesia [Recovered/Resolved]
  - Dizziness [Recovered/Resolved]
  - Panic attack [Recovered/Resolved]
  - Withdrawal syndrome [Recovered/Resolved]
  - Hostility [Recovered/Resolved]
  - Irritability [Recovered/Resolved]
  - Nausea [Recovered/Resolved]
  - Suicidal ideation [Recovered/Resolved]

NARRATIVE: CASE EVENT DATE: 20190330
